FAERS Safety Report 16965178 (Version 1)
Quarter: 2019Q4

REPORT INFORMATION
  Report Type: Spontaneous
  Country: US (occurrence: US)
  Receive Date: 20191028
  Receipt Date: 20191028
  Transmission Date: 20200122
  Serious: No
  Sender: FDA-Public Use
  Company Number: US-HIKMA PHARMACEUTICALS USA INC.-US-H14001-19-04491

PATIENT
  Sex: Male

DRUGS (2)
  1. OXCARBAZEPINE. [Suspect]
     Active Substance: OXCARBAZEPINE
     Indication: EPILEPSY
     Dosage: 300 MG/5 ML
     Route: 048
     Dates: end: 20190723
  2. ZYRTEC [Concomitant]
     Active Substance: CETIRIZINE HYDROCHLORIDE
     Indication: ASTHMA
     Route: 065

REACTIONS (6)
  - Aggression [Recovered/Resolved]
  - Social problem [Unknown]
  - Mood swings [Recovered/Resolved]
  - Rash [Not Recovered/Not Resolved]
  - Irritability [Recovered/Resolved]
  - Swelling [Unknown]
